FAERS Safety Report 14977960 (Version 2)
Quarter: 2018Q3

REPORT INFORMATION
  Report Type: Spontaneous
  Country: US (occurrence: US)
  Receive Date: 20180606
  Receipt Date: 20180710
  Transmission Date: 20181010
  Serious: No
  Sender: FDA-Public Use
  Company Number: US-PFIZER INC-2018226600

PATIENT
  Age: 70 Year
  Sex: Male
  Weight: 81.63 kg

DRUGS (1)
  1. ARTHROTEC [Suspect]
     Active Substance: DICLOFENAC SODIUM\MISOPROSTOL
     Indication: RHEUMATOID ARTHRITIS
     Dosage: 75 MG, 1X/DAY
     Route: 048
     Dates: start: 20180507, end: 20180509

REACTIONS (5)
  - Condition aggravated [Recovering/Resolving]
  - Hypoaesthesia [Recovering/Resolving]
  - Musculoskeletal stiffness [Recovering/Resolving]
  - Inflammation [Unknown]
  - Pain [Unknown]

NARRATIVE: CASE EVENT DATE: 20180507
